FAERS Safety Report 10360054 (Version 3)
Quarter: 2015Q4

REPORT INFORMATION
  Report Type: Spontaneous
  Country: US (occurrence: US)
  Receive Date: 20140804
  Receipt Date: 20151117
  Transmission Date: 20160304
  Serious: Yes (Hospitalization)
  Sender: FDA-Public Use
  Company Number: US-BAYER-2014-113446

PATIENT
  Age: 23 Year
  Sex: Female

DRUGS (11)
  1. IBUPROFEN. [Concomitant]
     Active Substance: IBUPROFEN
  2. TORADOL [Concomitant]
     Active Substance: KETOROLAC TROMETHAMINE
     Indication: PAIN MANAGEMENT
  3. TRAMADOL. [Concomitant]
     Active Substance: TRAMADOL
  4. ALBUTEROL. [Concomitant]
     Active Substance: ALBUTEROL
  5. MEDROL [METHYLPREDNISOLONE] [Concomitant]
  6. ZOFRAN [Concomitant]
     Active Substance: ONDANSETRON HYDROCHLORIDE
     Indication: PAIN MANAGEMENT
  7. MIRENA [Suspect]
     Active Substance: LEVONORGESTREL
     Indication: CONTRACEPTION
     Dosage: 20 MCG/24HR, CONT
     Route: 015
     Dates: start: 20130306, end: 20140429
  8. TUSSIONEX PENNKINETIC [Concomitant]
     Active Substance: CHLORPHENIRAMINE\HYDROCODONE
  9. GUAIFENESIN. [Concomitant]
     Active Substance: GUAIFENESIN
  10. TYLENOL [Concomitant]
     Active Substance: ACETAMINOPHEN
  11. NORCO [Concomitant]
     Active Substance: ACETAMINOPHEN\HYDROCODONE BITARTRATE

REACTIONS (3)
  - Uterine perforation [None]
  - Embedded device [None]
  - Injury [None]

NARRATIVE: CASE EVENT DATE: 20140425
